FAERS Safety Report 9468695 (Version 4)
Quarter: 2014Q1

REPORT INFORMATION
  Report Type: Spontaneous
  Country: GB (occurrence: GB)
  Receive Date: 20130821
  Receipt Date: 20140303
  Transmission Date: 20141002
  Serious: Yes (Other)
  Sender: FDA-Public Use
  Company Number: GB-PFIZER INC-2013230285

PATIENT
  Age: 74 Year
  Sex: Female

DRUGS (3)
  1. LIPITOR [Suspect]
     Indication: BLOOD CHOLESTEROL INCREASED
     Dosage: 10 MG, DAILY
     Route: 048
     Dates: start: 20111018
  2. LISINOPRIL [Concomitant]
     Indication: SYSTOLIC HYPERTENSION
     Dosage: 10 MG, DAILY
     Route: 048
     Dates: start: 20000524
  3. BENDROFLUMETHIAZIDE [Concomitant]
     Indication: SYSTOLIC HYPERTENSION
     Dosage: 2.5 MG, DAILY
     Route: 048
     Dates: start: 20040910

REACTIONS (3)
  - Coeliac disease [Not Recovered/Not Resolved]
  - Morphoea [Not Recovered/Not Resolved]
  - Pruritus [Unknown]
